FAERS Safety Report 8214217-1 (Version None)
Quarter: 2012Q1

REPORT INFORMATION
  Report Type: 
  Country: None (occurrence: None)
  Receive Date: 20120316
  Receipt Date: 20120313
  Transmission Date: 20120608
  Serious: Yes (Other)
  Sender: FDA-Public Use
  Company Number: FR-PFIZER INC-2012065713

PATIENT
  Age: 55 Year
  Sex: Male

DRUGS (1)
  1. ATORVASTATIN [Suspect]
     Indication: INFARCTION
     Dosage: 40 MG, UNK
     Dates: start: 20120126

REACTIONS (3)
  - TENDONITIS [None]
  - DIPLEGIA [None]
  - MUSCLE ATROPHY [None]
